FAERS Safety Report 11945112 (Version 2)
Quarter: 2019Q4

REPORT INFORMATION
  Report Type: Report from Study
  Country: CO (occurrence: CO)
  Receive Date: 20160125
  Receipt Date: 20191224
  Transmission Date: 20200122
  Serious: Yes (Other)
  Sender: FDA-Public Use
  Company Number: CO-JNJFOC-20160115860

PATIENT
  Age: 69 Year
  Sex: Female
  Weight: 55 kg

DRUGS (2)
  1. CALCIUM                            /00060701/ [Concomitant]
     Active Substance: CALCIUM
  2. SIMPONI [Suspect]
     Active Substance: GOLIMUMAB
     Indication: RHEUMATOID ARTHRITIS
     Route: 058
     Dates: start: 20150210, end: 20151119

REACTIONS (9)
  - Urinary tract infection [Not Recovered/Not Resolved]
  - Product administration error [Unknown]
  - Off label use [Unknown]
  - Hepatic steatosis [Unknown]
  - Pain [Unknown]
  - Dry skin [Unknown]
  - Therapeutic response decreased [Unknown]
  - Skin plaque [Unknown]
  - Pruritus [Unknown]

NARRATIVE: CASE EVENT DATE: 20150210
